FAERS Safety Report 4980813-8 (Version None)
Quarter: 2006Q2

REPORT INFORMATION
  Report Type: 
  Country: None (occurrence: None)
  Receive Date: 20060424
  Receipt Date: 20060313
  Transmission Date: 20061013
  Serious: Yes (Death, Other)
  Sender: FDA-Public Use
  Company Number: US-MERCK-0603USA02221

PATIENT
  Age: 67 Year
  Sex: Male
  Weight: 82 kg

DRUGS (3)
  1. VIOXX [Suspect]
     Indication: BACK INJURY
     Route: 048
     Dates: start: 19990915, end: 20040328
  2. ASPIRIN [Concomitant]
     Route: 065
  3. ADVIL [Concomitant]
     Route: 065

REACTIONS (2)
  - DEATH [None]
  - MYOCARDIAL INFARCTION [None]
